FAERS Safety Report 12228812 (Version 1)
Quarter: 2016Q1

REPORT INFORMATION
  Report Type: Spontaneous
  Country: US (occurrence: None)
  Receive Date: 20160331
  Receipt Date: 20160331
  Transmission Date: 20160526
  Serious: No
  Sender: FDA-Public Use
  Company Number: None

PATIENT
  Age: 22 Year
  Sex: Female
  Weight: 56.25 kg

DRUGS (3)
  1. MIRENA [Suspect]
     Active Substance: LEVONORGESTREL
     Dosage: 1 VAGINAL ALWAYS VAGINAL
     Route: 067
     Dates: start: 20150922
  2. BENADRYL [Concomitant]
     Active Substance: DIPHENHYDRAMINE HYDROCHLORIDE
  3. IBUPROFEN. [Concomitant]
     Active Substance: IBUPROFEN

REACTIONS (11)
  - Mood swings [None]
  - Hypoaesthesia [None]
  - Back pain [None]
  - Adnexa uteri pain [None]
  - Headache [None]
  - Irritability [None]
  - Pain in extremity [None]
  - Palpitations [None]
  - Chest pain [None]
  - Anxiety [None]
  - Complication associated with device [None]

NARRATIVE: CASE EVENT DATE: 20160120
